FAERS Safety Report 9010936 (Version 2)
Quarter: 2013Q1

REPORT INFORMATION
  Report Type: Spontaneous
  Country: US (occurrence: US)
  Receive Date: 20130111
  Receipt Date: 20130208
  Transmission Date: 20140127
  Serious: Yes (Hospitalization)
  Sender: FDA-Public Use
  Company Number: PHEH2013US001025

PATIENT
  Age: 59 Year
  Sex: Female
  Weight: 71.67 kg

DRUGS (16)
  1. GILENYA [Suspect]
     Indication: MULTIPLE SCLEROSIS
     Dosage: 0.5 MG, QD
     Route: 048
     Dates: start: 20110119
  2. ALBUTEROL SULFATE [Concomitant]
     Dosage: 2 PUFF EVERY 6 HOURS
  3. ALENDRONATE [Concomitant]
     Route: 048
  4. ALPRAZOLAM [Concomitant]
     Dosage: 1 MG, UNK
     Route: 048
  5. AMFETAMINE SULFATE W/DEXAMFETAMINE [Concomitant]
     Dosage: 30 MG, Q3H
     Route: 048
  6. CARISOPRODOL [Concomitant]
     Dosage: 350 MG, DAILY
     Route: 048
  7. CEVIMELINE [Concomitant]
     Dosage: 30 MG, UNK
     Route: 048
  8. VITAMIN D3 [Concomitant]
     Dosage: 1 DF, UNK
     Route: 048
  9. VITAMIN B12 [Concomitant]
     Dosage: 1000 UG/ML, UNK
  10. EXELON [Concomitant]
     Dosage: 4.6 MG, UNK
     Route: 062
  11. MEMANTINE [Concomitant]
     Dosage: 10 MG, UNK
     Route: 048
  12. OXYCODONE-ACET [Concomitant]
     Indication: PAIN
     Dosage: 10 MG -325 MG
     Route: 048
  13. PREGABALIN [Concomitant]
     Dosage: 75 MG, TID
     Route: 048
  14. PRIMIDONE [Concomitant]
     Dosage: 50 MG, TID
     Route: 048
  15. CM PROMETHAZINE [Concomitant]
     Indication: NAUSEA
     Dosage: 25 MG, UNK
     Route: 048
  16. TIZANIDINE [Concomitant]
     Dosage: 4 MG, UNK
     Route: 048

REACTIONS (9)
  - Bronchitis [Recovering/Resolving]
  - Bronchospasm [Unknown]
  - Wheezing [Unknown]
  - Dehydration [Recovering/Resolving]
  - Respiratory tract congestion [Recovering/Resolving]
  - Cough [Recovering/Resolving]
  - Pain in extremity [Not Recovered/Not Resolved]
  - Local swelling [Recovering/Resolving]
  - Fall [Unknown]
